FAERS Safety Report 8684355 (Version 2)
Quarter: 2012Q4

REPORT INFORMATION
  Report Type: 
  Country: JP (occurrence: JP)
  Receive Date: 20120726
  Receipt Date: 20120907
  Transmission Date: 20130627
  Serious: No
  Sender: FDA-Public Use
  Company Number: JP-PFIZER INC-2012175302

PATIENT
  Age: 61 Year
  Sex: Female

DRUGS (3)
  1. AZULFIDINE [Suspect]
     Indication: RHEUMATOID ARTHRITIS
     Dosage: 1 g, 1x/day
     Route: 048
     Dates: start: 20120627, end: 20120712
  2. FARNEZONE [Concomitant]
     Dosage: UNK
     Route: 061
  3. MOVER [Concomitant]
     Dosage: UNK

REACTIONS (2)
  - Eczema [Recovering/Resolving]
  - White blood cell count decreased [Recovering/Resolving]
